FAERS Safety Report 5565427-3 (Version None)
Quarter: 2007Q4

REPORT INFORMATION
  Report Type: 
  Country: None (occurrence: None)
  Receive Date: 20071218
  Receipt Date: 20071205
  Transmission Date: 20080405
  Serious: Yes (Death)
  Sender: FDA-Public Use
  Company Number: DE-TEVA-165049ISR

PATIENT
  Age: 67 Year
  Sex: Female

DRUGS (4)
  1. FLUDARABINE PHOSPHATE [Suspect]
     Indication: MULTIPLE MYELOMA
  2. CYCLOPHOSPHAMIDE [Suspect]
     Indication: MULTIPLE MYELOMA
  3. ANTITHYMOCYTE IMMUNOGLOBULIN [Suspect]
     Indication: MULTIPLE MYELOMA
  4. ANTITHYMOCYTE IMMUNOGLOBULIN [Suspect]

REACTIONS (3)
  - CYTOMEGALOVIRUS INFECTION [None]
  - EPSTEIN-BARR VIRUS INFECTION [None]
  - MYELITIS [None]
